FAERS Safety Report 8421130-3 (Version None)
Quarter: 2012Q2

REPORT INFORMATION
  Report Type: 
  Country: None (occurrence: None)
  Receive Date: 20120608
  Receipt Date: 20120605
  Transmission Date: 20120825
  Serious: Yes (Death)
  Sender: FDA-Public Use
  Company Number: US-CELGENEUS-163-21880-12060532

PATIENT
  Sex: Female

DRUGS (14)
  1. REVLIMID [Suspect]
     Indication: MULTIPLE MYELOMA
     Dosage: 25 MILLIGRAM
     Route: 048
     Dates: start: 20120413
  2. GABAPENTIN [Concomitant]
     Dosage: 600 MILLIGRAM
     Route: 065
  3. WARFARIN SODIUM [Concomitant]
     Dosage: 4 MILLIGRAM
     Route: 065
  4. LEVOTHYROXINE SODIUM [Concomitant]
     Dosage: 50 MICROGRAM
     Route: 065
  5. MORPHINE SULFATE [Concomitant]
     Dosage: 80 MILLIGRAM
     Route: 065
  6. SEPTRA [Concomitant]
     Dosage: 200-40/5
     Route: 065
  7. ACYCLOVIR [Concomitant]
     Dosage: 800 MILLIGRAM
     Route: 065
  8. CYCLOPHOSPH [Concomitant]
     Dosage: 25 MILLIGRAM
     Route: 065
  9. DEXAMETHASONE [Concomitant]
     Dosage: .75 MILLIGRAM
     Route: 065
  10. PROTONIX [Concomitant]
     Dosage: 20 MILLIGRAM
     Route: 065
  11. CELEXA [Concomitant]
     Dosage: 20 MILLIGRAM
     Route: 065
  12. BIAXIN [Concomitant]
     Dosage: 250 MILLIGRAM
     Route: 065
  13. HYDROMORPHONE HYDROCHLORIDE [Concomitant]
     Route: 065
  14. PROVERA [Concomitant]
     Dosage: 2.5 MILLIGRAM
     Route: 065

REACTIONS (1)
  - DEATH [None]
